FAERS Safety Report 18145375 (Version 3)
Quarter: 2020Q3

REPORT INFORMATION
  Report Type: Spontaneous
  Country: US (occurrence: US)
  Receive Date: 20200813
  Receipt Date: 20200828
  Transmission Date: 20201103
  Serious: No
  Sender: FDA-Public Use
  Company Number: US-GLAXOSMITHKLINE-US2020AMR153170

PATIENT
  Sex: Female

DRUGS (3)
  1. ZEJULA [Suspect]
     Active Substance: NIRAPARIB
     Dosage: 100 MG, QD
     Route: 048
     Dates: start: 20200803
  2. ZEJULA [Suspect]
     Active Substance: NIRAPARIB
     Dosage: 100 MG, QD AT NOON WITHOUT FOOD
     Route: 048
  3. ZEJULA [Suspect]
     Active Substance: NIRAPARIB
     Indication: OVARIAN CANCER
     Dosage: 200 MG, QD
     Route: 048
     Dates: start: 20200727

REACTIONS (10)
  - Adverse drug reaction [Recovered/Resolved]
  - Insomnia [Not Recovered/Not Resolved]
  - Headache [Unknown]
  - Hypotension [Not Recovered/Not Resolved]
  - Neck pain [Unknown]
  - Dizziness [Unknown]
  - Muscle tightness [Recovered/Resolved]
  - Oral mucosal blistering [Unknown]
  - Peripheral swelling [Recovering/Resolving]
  - Hot flush [Recovered/Resolved]
